FAERS Safety Report 4386113-1 (Version None)
Quarter: 2004Q2

REPORT INFORMATION
  Report Type: 
  Country: None (occurrence: None)
  Receive Date: 20040622
  Receipt Date: 20040609
  Transmission Date: 20050107
  Serious: Yes (Other)
  Sender: FDA-Public Use
  Company Number: 2004038277

PATIENT
  Age: 32 Year
  Sex: Female

DRUGS (1)
  1. ZYRTEC [Suspect]
     Indication: SEASONAL ALLERGY
     Dosage: 10 MG (1 IN 1 D), ORAL
     Route: 048
     Dates: end: 20040429

REACTIONS (3)
  - BRADYPHRENIA [None]
  - DYSARTHRIA [None]
  - SOMNOLENCE [None]
